FAERS Safety Report 21143370 (Version 1)
Quarter: 2022Q3

REPORT INFORMATION
  Report Type: Spontaneous
  Country: GB (occurrence: None)
  Receive Date: 20220728
  Receipt Date: 20220728
  Transmission Date: 20221026
  Serious: Yes (Other)
  Sender: FDA-Public Use
  Company Number: 2022A269422

PATIENT

DRUGS (1)
  1. OMEPRAZOLE [Suspect]
     Active Substance: OMEPRAZOLE
     Indication: Gastrooesophageal reflux disease
     Route: 065

REACTIONS (5)
  - Onychomadesis [Recovering/Resolving]
  - Rosacea [Unknown]
  - Nail discolouration [Recovering/Resolving]
  - Granuloma skin [Unknown]
  - Nail growth abnormal [Not Recovered/Not Resolved]
